FAERS Safety Report 10039989 (Version 1)
Quarter: 2014Q1

REPORT INFORMATION
  Report Type: Spontaneous
  Country: US (occurrence: US)
  Receive Date: 20140326
  Receipt Date: 20140326
  Transmission Date: 20141002
  Serious: No
  Sender: FDA-Public Use
  Company Number: US-GILEAD-2014-0097587

PATIENT
  Sex: Female

DRUGS (12)
  1. LETAIRIS [Suspect]
     Indication: PULMONARY HYPERTENSION
     Dates: start: 20120116
  2. TYVASO [Suspect]
     Indication: UNEVALUABLE EVENT
     Dates: start: 20130420
  3. SILDENAFIL [Concomitant]
  4. AMLODIPINE [Concomitant]
  5. FUROSEMIDE [Concomitant]
  6. LEVOTHYROXINE [Concomitant]
  7. PANTOPRAZOLE [Concomitant]
  8. TRICOR                             /00499301/ [Concomitant]
  9. COMBIVENT [Concomitant]
  10. ASPIRIN [Concomitant]
  11. PLAQUENIL                          /00072603/ [Concomitant]
  12. BUMETANIDE [Concomitant]

REACTIONS (2)
  - Myalgia [Not Recovered/Not Resolved]
  - Neuralgia [Not Recovered/Not Resolved]
